FAERS Safety Report 7146286-4 (Version None)
Quarter: 2010Q4

REPORT INFORMATION
  Report Type: 
  Country: None (occurrence: None)
  Receive Date: 20101208
  Receipt Date: 20101125
  Transmission Date: 20110411
  Serious: Yes (Other)
  Sender: FDA-Public Use
  Company Number: HK-AMGEN-US430535

PATIENT

DRUGS (2)
  1. ENBREL [Suspect]
     Indication: ANKYLOSING SPONDYLITIS
     Dosage: UNK UNK, UNK
     Route: 058
     Dates: start: 20100701
  2. INDOMETACIN [Concomitant]
     Dosage: UNK UNK, UNK

REACTIONS (4)
  - INJECTION SITE HYPERSENSITIVITY [None]
  - INJECTION SITE PAIN [None]
  - INJECTION SITE RASH [None]
  - LIMB IMMOBILISATION [None]
